FAERS Safety Report 7028314-X (Version None)
Quarter: 2010Q4

REPORT INFORMATION
  Report Type: 
  Country: None (occurrence: None)
  Receive Date: 20101005
  Receipt Date: 20100917
  Transmission Date: 20110411
  Serious: Yes (Congenital Anomaly, Other)
  Sender: FDA-Public Use
  Company Number: JP-ROCHE-724683

PATIENT
  Sex: Male

DRUGS (4)
  1. FANSIDAR [Suspect]
     Route: 064
  2. FOLIC ACID [Concomitant]
     Dosage: DOSE FORM PERORAL AGENT 3 WEEKS FROM 25EEKS AND 1DAYS OF PREGNANCY.
     Route: 064
  3. AZITHROMYCIN DIHYDRATE [Concomitant]
     Dosage: 3 DAYS ADMINISTRATION AND 4 DAYS OFF, FROM 28WEEKS AND 4DAYS OF PREGNANCY TO DELIVERLY
     Route: 064
  4. ACETYLSPIRAMYCIN [Concomitant]
     Dosage: FROM 31WEEKS AND 6DAYS OF PREGNANCY
     Route: 064

REACTIONS (8)
  - ASCITES [None]
  - CEREBRAL CALCIFICATION [None]
  - CEREBRAL VENTRICLE DILATATION [None]
  - CONGENITAL TOXOPLASMOSIS [None]
  - EYE INFECTION TOXOPLASMAL [None]
  - HEPATOSPLENOMEGALY [None]
  - HYDROCEPHALUS [None]
  - MENINGITIS [None]
